FAERS Safety Report 6134874-3 (Version None)
Quarter: 2009Q1

REPORT INFORMATION
  Report Type: 
  Country: None (occurrence: None)
  Receive Date: 20090327
  Receipt Date: 20090316
  Transmission Date: 20090719
  Serious: Yes (Death)
  Sender: FDA-Public Use
  Company Number: JP-PFIZER INC-2009184826

PATIENT

DRUGS (1)
  1. VFEND [Suspect]

REACTIONS (1)
  - ANAPHYLACTIC SHOCK [None]
